FAERS Safety Report 5977507-9 (Version None)
Quarter: 2008Q4

REPORT INFORMATION
  Report Type: 
  Country: None (occurrence: None)
  Receive Date: 20081125
  Receipt Date: 20081114
  Transmission Date: 20090506
  Serious: Yes (Hospitalization)
  Sender: FDA-Public Use
  Company Number: 230014M08ITA

PATIENT
  Age: 44 Year
  Sex: Female

DRUGS (4)
  1. REBIF [Suspect]
     Indication: MULTIPLE SCLEROSIS
     Dosage: 44 MCG, SUBCUTANEOUS, 22 MCG, SUBCUTANEOUS
     Route: 058
     Dates: start: 20080910, end: 20081003
  2. REBIF [Suspect]
     Indication: MULTIPLE SCLEROSIS
     Dosage: 44 MCG, SUBCUTANEOUS, 22 MCG, SUBCUTANEOUS
     Route: 058
     Dates: start: 20081010, end: 20081022
  3. SOLU-MEDROL [Suspect]
     Indication: MULTIPLE SCLEROSIS RELAPSE
     Dosage: 1 G, 1 IN 1 DAYS, INTRAVENOUS
     Route: 042
     Dates: start: 20080904, end: 20080906
  4. TACHIPIRINA (PARACETAMOL) [Suspect]
     Indication: INFLUENZA LIKE ILLNESS
     Dosage: 1500 MG, 1 IN 1 D AYS, ORAL
     Route: 048
     Dates: start: 20081018, end: 20081019

REACTIONS (4)
  - DRUG TOLERANCE DECREASED [None]
  - HEPATITIS TOXIC [None]
  - INFLUENZA LIKE ILLNESS [None]
  - MULTIPLE SCLEROSIS RELAPSE [None]
